FAERS Safety Report 8478956-X (Version None)
Quarter: 2012Q2

REPORT INFORMATION
  Report Type: 
  Country: None (occurrence: None)
  Receive Date: 20120629
  Receipt Date: 20120619
  Transmission Date: 20120825
  Serious: Yes (Life-Threatening, Hospitalization, Other)
  Sender: FDA-Public Use
  Company Number: US-MYLANLABS-2009AL004041

PATIENT
  Age: 61 Year
  Sex: Female
  Weight: 65 kg

DRUGS (8)
  1. SPIRIVA [Concomitant]
  2. ASPIRIN [Concomitant]
  3. ADVAIR DISKUS 100/50 [Concomitant]
  4. METOPROLOL SUCCINATE [Concomitant]
  5. LEVOTHROID [Concomitant]
  6. DIGOXIN [Suspect]
     Indication: PRODUCT USED FOR UNKNOWN INDICATION
     Route: 048
     Dates: start: 20080116, end: 20080315
  7. BUMETANIDE [Concomitant]
  8. LISINOPRIL [Concomitant]

REACTIONS (32)
  - EMPHYSEMA [None]
  - CARDIAC MURMUR [None]
  - EJECTION FRACTION DECREASED [None]
  - BRONCHITIS CHRONIC [None]
  - TOBACCO USER [None]
  - ORTHOPNOEA [None]
  - DIZZINESS [None]
  - TRICUSPID VALVE INCOMPETENCE [None]
  - CHRONIC OBSTRUCTIVE PULMONARY DISEASE [None]
  - PULMONARY FUNCTION TEST ABNORMAL [None]
  - CARDIAC FAILURE CONGESTIVE [None]
  - BUNDLE BRANCH BLOCK LEFT [None]
  - DYSPNOEA EXERTIONAL [None]
  - MITRAL VALVE INCOMPETENCE [None]
  - LEFT VENTRICULAR FAILURE [None]
  - GASTROOESOPHAGEAL REFLUX DISEASE [None]
  - JOINT RANGE OF MOTION DECREASED [None]
  - DYSPNOEA [None]
  - ARTHRITIS [None]
  - SINUS TACHYCARDIA [None]
  - ECHOCARDIOGRAM ABNORMAL [None]
  - LETHARGY [None]
  - MUSCULOSKELETAL PAIN [None]
  - INSOMNIA [None]
  - CARDIOMYOPATHY [None]
  - BREATH SOUNDS ABNORMAL [None]
  - JOINT INJURY [None]
  - ABDOMINAL DISTENSION [None]
  - RESPIRATORY FAILURE [None]
  - FATIGUE [None]
  - MALAISE [None]
  - ELECTROCARDIOGRAM ABNORMAL [None]
